FAERS Safety Report 25845909 (Version 1)
Quarter: 2025Q3

REPORT INFORMATION
  Report Type: Spontaneous
  Country: EU (occurrence: EU)
  Receive Date: 20250925
  Receipt Date: 20250925
  Transmission Date: 20251021
  Serious: Yes (Hospitalization)
  Sender: RANBAXY
  Company Number: EU-BFARM-25004053

PATIENT
  Age: 66 Year
  Sex: Female

DRUGS (11)
  1. OLANZAPINE [Suspect]
     Active Substance: OLANZAPINE
     Indication: Product used for unknown indication
     Dosage: 5 MILLIGRAM, DAILY, FOR A WHILE NOW
     Route: 048
     Dates: end: 20231222
  2. OLANZAPINE [Suspect]
     Active Substance: OLANZAPINE
     Dosage: 10 MILLIGRAM, DAILY
     Route: 048
     Dates: start: 20231223, end: 20231226
  3. OLANZAPINE [Suspect]
     Active Substance: OLANZAPINE
     Dosage: 15 MILLIGRAM, DAILY
     Route: 048
     Dates: start: 20231227, end: 20240123
  4. OLANZAPINE [Suspect]
     Active Substance: OLANZAPINE
     Dosage: 20 MILLIGRAM, DAILY
     Route: 048
     Dates: start: 20240124, end: 20240209
  5. OLANZAPINE [Suspect]
     Active Substance: OLANZAPINE
     Dosage: B.A.W.
     Route: 048
     Dates: start: 20240210
  6. QUETIAPINE FUMARATE [Suspect]
     Active Substance: QUETIAPINE FUMARATE
     Indication: Product used for unknown indication
     Dosage: 150 MILLIGRAM, DAILY, FOR A WHILE NOW
     Route: 048
     Dates: end: 20231221
  7. QUETIAPINE FUMARATE [Suspect]
     Active Substance: QUETIAPINE FUMARATE
     Dosage: 100 MILLIGRAM, DAILY
     Route: 048
     Dates: start: 20231222, end: 20231226
  8. QUETIAPINE FUMARATE [Suspect]
     Active Substance: QUETIAPINE FUMARATE
     Dosage: 50 MILLIGRAM, DAILY, B.A.W.
     Route: 048
     Dates: start: 20231227
  9. FLUOXETINE [Concomitant]
     Active Substance: FLUOXETINE HYDROCHLORIDE
     Indication: Product used for unknown indication
     Dosage: 10 MILLIGRAM, DAILY, B.A.W.
     Route: 048
     Dates: start: 20240104, end: 20240110
  10. FLUOXETINE [Concomitant]
     Active Substance: FLUOXETINE HYDROCHLORIDE
     Dosage: 20 MILLIGRAM, DAILY
     Route: 048
     Dates: start: 20240111
  11. AMLODIPINE BESYLATE [Concomitant]
     Active Substance: AMLODIPINE BESYLATE
     Indication: Product used for unknown indication
     Dosage: 10 MILLIGRAM, DAILY, FOR A LONG TIME AND ELSEWHERE
     Route: 048

REACTIONS (1)
  - Periorbital oedema [Recovered/Resolved]
